FAERS Safety Report 23177526 (Version 1)
Quarter: 2023Q4

REPORT INFORMATION
  Report Type: Spontaneous
  Country: US (occurrence: None)
  Receive Date: 20231112
  Receipt Date: 20231112
  Transmission Date: 20240110
  Serious: Yes (Disabling)
  Sender: FDA-Public Use
  Company Number: None

PATIENT
  Age: 85 Year
  Sex: Male
  Weight: 59.4 kg

DRUGS (7)
  1. JARDIANCE [Suspect]
     Active Substance: EMPAGLIFLOZIN
     Indication: Renal failure
     Dosage: OTHER QUANTITY : 1 TABLET(S);?FREQUENCY : DAILY;?
     Route: 048
     Dates: start: 20230805
  2. LOSARTAN [Concomitant]
     Active Substance: LOSARTAN
  3. febuxastat [Concomitant]
  4. MINERALS\VITAMINS [Concomitant]
     Active Substance: MINERALS\VITAMINS
  5. VITAMIN D [Concomitant]
     Active Substance: VITAMIN D NOS
  6. Centrum 1 A Day [Concomitant]
  7. FOLIC ACID [Concomitant]
     Active Substance: FOLIC ACID

REACTIONS (8)
  - Arthralgia [None]
  - Joint swelling [None]
  - Joint stiffness [None]
  - Joint warmth [None]
  - Pain in extremity [None]
  - Arthralgia [None]
  - Spinal pain [None]
  - Gout [None]

NARRATIVE: CASE EVENT DATE: 20231001
